FAERS Safety Report 25452082 (Version 1)
Quarter: 2025Q2

REPORT INFORMATION
  Report Type: Spontaneous
  Country: US (occurrence: US)
  Receive Date: 20250618
  Receipt Date: 20250618
  Transmission Date: 20250716
  Serious: No
  Sender: SANOFI AVENTIS
  Company Number: US-SA-2025SA171963

PATIENT
  Sex: Female

DRUGS (15)
  1. DUPIXENT [Suspect]
     Active Substance: DUPILUMAB
     Indication: Asthma
     Dosage: 300 MG, QOW
     Route: 058
  2. FERROUS SULFATE [Concomitant]
     Active Substance: FERROUS SULFATE
  3. ALBUTEIN [Concomitant]
     Active Substance: ALBUMIN HUMAN
  4. BENZONATATE [Concomitant]
     Active Substance: BENZONATATE
  5. CALCIUM [Concomitant]
     Active Substance: CALCIUM
  6. DALIRESP [Concomitant]
     Active Substance: ROFLUMILAST
  7. DULOXETINE [Concomitant]
     Active Substance: DULOXETINE
  8. FLUTICASONE [Concomitant]
     Active Substance: FLUTICASONE
  9. GABAPENTIN [Concomitant]
     Active Substance: GABAPENTIN
  10. MONTELUKAST [Concomitant]
     Active Substance: MONTELUKAST
  11. POTASSIUM [Concomitant]
     Active Substance: POTASSIUM
  12. TOPIRAMATE [Concomitant]
     Active Substance: TOPIRAMATE
  13. VITAMIN D3 [Concomitant]
     Active Substance: CHOLECALCIFEROL
  14. XANAX [Concomitant]
     Active Substance: ALPRAZOLAM
  15. ZANAFLEX [Concomitant]
     Active Substance: TIZANIDINE HYDROCHLORIDE

REACTIONS (1)
  - Iron deficiency [Unknown]
